FAERS Safety Report 6961092 (Version 5)
Quarter: 2014Q1

REPORT INFORMATION
  Report Type: Spontaneous
  Country: US (occurrence: US)
  Receive Date: 20090406
  Receipt Date: 20140317
  Transmission Date: 20141002
  Serious: Yes (Other)
  Sender: FDA-Public Use
  Company Number: US-BAYER-200916888NA

PATIENT
  Age: 33 Year
  Sex: Female
  Weight: 45 kg

DRUGS (5)
  1. MIRENA [Suspect]
     Indication: CONTRACEPTION
     Dosage: 20 MCG/24HR, CONT
     Route: 015
     Dates: start: 20080318, end: 20081204
  2. VERAMYST [Concomitant]
  3. ALLEGRA-D [Concomitant]
  4. ORAL CONTRACEPTIVE NOS [Concomitant]
     Dosage: UNK
     Dates: start: 1996, end: 2011
  5. NUVARING [Concomitant]
     Dosage: UNK
     Dates: start: 2005, end: 2010

REACTIONS (18)
  - Uterine perforation [None]
  - Genital haemorrhage [None]
  - Emotional distress [None]
  - Thyroiditis [Unknown]
  - Depression [None]
  - Disturbance in attention [Unknown]
  - Amnesia [Unknown]
  - Mood swings [Unknown]
  - Vaginal haemorrhage [Unknown]
  - Anxiety [None]
  - Arthralgia [None]
  - Arthralgia [None]
  - Headache [None]
  - Fatigue [None]
  - Alopecia [None]
  - Pain in extremity [None]
  - Injury [None]
  - Pain [None]
